FAERS Safety Report 25265657 (Version 1)
Quarter: 2025Q2

REPORT INFORMATION
  Report Type: Spontaneous
  Country: JP (occurrence: JP)
  Receive Date: 20250503
  Receipt Date: 20250503
  Transmission Date: 20250717
  Serious: Yes (Hospitalization)
  Sender: PANACEA BIOTEC PHARMA LIMITED
  Company Number: JP-PBT-010383

PATIENT
  Age: 52 Year
  Sex: Female

DRUGS (13)
  1. TACROLIMUS [Suspect]
     Active Substance: TACROLIMUS
     Indication: Pneumonitis
     Route: 065
  2. PREDNISOLONE [Suspect]
     Active Substance: PREDNISOLONE
     Indication: Pneumonitis
     Dosage: (50 MG DAILY, 0.8 MG/KG) RE-ADMINISTERED
     Route: 048
  3. AMPICILLIN SODIUM\SULBACTAM SODIUM [Concomitant]
     Active Substance: AMPICILLIN SODIUM\SULBACTAM SODIUM
     Indication: Pneumonia bacterial
     Route: 065
  4. TACROLIMUS [Suspect]
     Active Substance: TACROLIMUS
     Indication: Organising pneumonia
     Route: 065
  5. TACROLIMUS [Suspect]
     Active Substance: TACROLIMUS
     Indication: Pneumonitis
     Route: 065
  6. TACROLIMUS [Suspect]
     Active Substance: TACROLIMUS
     Indication: Organising pneumonia
     Route: 065
  7. PREDNISOLONE [Suspect]
     Active Substance: PREDNISOLONE
     Indication: Organising pneumonia
     Dosage: (50 MG DAILY, 0.8 MG/KG) RE-ADMINISTERED
     Route: 048
  8. PREDNISOLONE [Suspect]
     Active Substance: PREDNISOLONE
     Indication: Pneumonitis
     Dosage: ON DAY 15
     Route: 048
  9. PREDNISOLONE [Suspect]
     Active Substance: PREDNISOLONE
     Indication: Organising pneumonia
     Dosage: ON DAY 15
     Route: 048
  10. PREDNISOLONE [Suspect]
     Active Substance: PREDNISOLONE
     Indication: Pneumonitis
     Dosage: ON DAY 22
     Route: 048
  11. PREDNISOLONE [Suspect]
     Active Substance: PREDNISOLONE
     Indication: Organising pneumonia
     Dosage: ON DAY 22
     Route: 048
  12. PREDNISOLONE [Suspect]
     Active Substance: PREDNISOLONE
     Indication: Pneumonitis
     Route: 048
  13. PREDNISOLONE [Suspect]
     Active Substance: PREDNISOLONE
     Indication: Organising pneumonia
     Route: 048

REACTIONS (2)
  - Postoperative wound infection [Recovered/Resolved]
  - Product use in unapproved indication [Unknown]
